FAERS Safety Report 17865655 (Version 1)
Quarter: 2020Q2

REPORT INFORMATION
  Report Type: Spontaneous
  Country: US (occurrence: US)
  Receive Date: 20200605
  Receipt Date: 20200605
  Transmission Date: 20200714
  Serious: Yes (Other)
  Sender: FDA-Public Use
  Company Number: None

PATIENT
  Age: 81 Year
  Sex: Male
  Weight: 107.1 kg

DRUGS (17)
  1. LOVASTATIN 40MG [Concomitant]
     Active Substance: LOVASTATIN
  2. METOPROLOL SUCCINATE 100MG [Concomitant]
  3. OLMESARTAN MEDOXOMIL 40MG [Concomitant]
     Active Substance: OLMESARTAN MEDOXOMIL
  4. FINASTERIDE 5MG [Concomitant]
     Active Substance: FINASTERIDE
  5. NITROSTAT [Concomitant]
     Active Substance: NITROGLYCERIN
  6. SUDAFED [Concomitant]
     Active Substance: PSEUDOEPHEDRINE HYDROCHLORIDE
  7. TAMSULOSIN 0.4MG [Concomitant]
     Active Substance: TAMSULOSIN
  8. TIMOLOL MALEATE 0.5% [Concomitant]
     Active Substance: TIMOLOL MALEATE
  9. LEVEMIR 100U/ML [Concomitant]
  10. POTASSIUM CHLORIDE 20MEQ [Concomitant]
     Active Substance: POTASSIUM CHLORIDE
  11. ALLOPURINOL 100MG [Concomitant]
     Active Substance: ALLOPURINOL
  12. PANTOPRAZOLE 40MG [Concomitant]
     Active Substance: PANTOPRAZOLE SODIUM
  13. XALKORI [Suspect]
     Active Substance: CRIZOTINIB
     Indication: LUNG CARCINOMA CELL TYPE UNSPECIFIED STAGE 0
     Route: 048
     Dates: start: 20200304, end: 20200505
  14. FUROSEMIDE 40MG [Concomitant]
     Active Substance: FUROSEMIDE
  15. SENNA PLUS 8.6-50MG [Concomitant]
  16. FLONASE [Concomitant]
     Active Substance: FLUTICASONE PROPIONATE
  17. LATANOPROST 0.005% [Concomitant]
     Active Substance: LATANOPROST

REACTIONS (1)
  - Hospice care [None]

NARRATIVE: CASE EVENT DATE: 20200505
